FAERS Safety Report 5841077-6 (Version None)
Quarter: 2008Q3

REPORT INFORMATION
  Report Type: 
  Country: None (occurrence: None)
  Receive Date: 20080812
  Receipt Date: 20080801
  Transmission Date: 20090109
  Serious: Yes (Other)
  Sender: FDA-Public Use
  Company Number: GB-RANBAXY-2008RR-16914

PATIENT

DRUGS (1)
  1. ISOTRETINOIN [Suspect]
     Dosage: UNK

REACTIONS (1)
  - DRUG EXPOSURE DURING PREGNANCY [None]
